FAERS Safety Report 4511704-4 (Version None)
Quarter: 2004Q4

REPORT INFORMATION
  Report Type: 
  Country: None (occurrence: None)
  Receive Date: 20041119
  Receipt Date: 20041109
  Transmission Date: 20050328
  Serious: No
  Sender: FDA-Public Use
  Company Number: 04H-066-0280555-00

PATIENT
  Sex: Female

DRUGS (5)
  1. LEUCOVORIN CALCIUM [Suspect]
     Indication: CHEMOTHERAPY
     Dosage: 200 MG/M2, ONCE DAILY OVER 2 HOURS, INFUSION, 2 CONSECUTIVE DAYS, EVERY 3 WK
  2. OXALIPLATIN [Suspect]
     Indication: CHEMOTHERAPY
     Dosage: 85 MG/M2, ONCE OVER 2 HOURS, INFUSION, ON DAY 1, EVERY 3WEEKS INTRAVENOUS BOLUS
     Route: 040
  3. FLUOROURACIL [Suspect]
     Indication: CHEMOTHERAPY
     Dosage: 400 MG/M2, ONCE PER DAY FOR 2 DAYS, EVERY 3 WEEKS, INTRAVENOUS BOLUS
     Route: 040
  4. GLUCOSE [Concomitant]
  5. ONDANSETRON [Concomitant]

REACTIONS (2)
  - NAUSEA [None]
  - VOMITING [None]
